FAERS Safety Report 6370119-7 (Version None)
Quarter: 2009Q3

REPORT INFORMATION
  Report Type: 
  Country: None (occurrence: None)
  Receive Date: 20090923
  Receipt Date: 20071210
  Transmission Date: 20100115
  Serious: Yes (Hospitalization)
  Sender: FDA-Public Use
  Company Number: US-ASTRAZENECA-2006UW21362

PATIENT
  Age: 17662 Day
  Sex: Female
  Weight: 67.6 kg

DRUGS (12)
  1. SEROQUEL [Suspect]
     Indication: DEPRESSION
     Route: 048
     Dates: start: 20000101, end: 20030101
  2. SEROQUEL [Suspect]
     Indication: ANXIETY
     Route: 048
     Dates: start: 20000101, end: 20030101
  3. SEROQUEL [Suspect]
     Dosage: 25-225 MG DAILY
     Route: 048
     Dates: start: 20040329
  4. SEROQUEL [Suspect]
     Dosage: 25-225 MG DAILY
     Route: 048
     Dates: start: 20040329
  5. PAXIL [Concomitant]
     Dates: start: 20040329
  6. VICOPROFEN [Concomitant]
     Dates: start: 20010802
  7. PROZAC [Concomitant]
     Dates: start: 20010906
  8. PROMETHAZINE [Concomitant]
     Dates: start: 20010906
  9. ZANAFLEX [Concomitant]
     Dates: start: 20010918
  10. PERCOCET [Concomitant]
     Dosage: 7.5/500 MG
     Dates: start: 20011006
  11. MEDROXYPROGESTERONE [Concomitant]
     Dates: start: 20020911
  12. DETROL LA [Concomitant]
     Dates: start: 20021008

REACTIONS (2)
  - HYPERGLYCAEMIA [None]
  - INTENTIONAL OVERDOSE [None]
